FAERS Safety Report 18491987 (Version 2)
Quarter: 2020Q4

REPORT INFORMATION
  Report Type: Spontaneous
  Country: US (occurrence: US)
  Receive Date: 20201111
  Receipt Date: 20201116
  Transmission Date: 20210114
  Serious: No
  Sender: FDA-Public Use
  Company Number: US-PFIZER INC-2020442022

PATIENT
  Age: 70 Year
  Sex: Female

DRUGS (1)
  1. IBRANCE [Suspect]
     Active Substance: PALBOCICLIB
     Dosage: 125 MG
     Dates: start: 202005

REACTIONS (7)
  - Mouth haemorrhage [Unknown]
  - Fatigue [Unknown]
  - Stomatitis [Unknown]
  - Anaemia [Unknown]
  - Dyspnoea [Unknown]
  - Bone pain [Unknown]
  - Infection [Unknown]
